FAERS Safety Report 25667592 (Version 2)
Quarter: 2025Q3

REPORT INFORMATION
  Report Type: Report from Study
  Country: US (occurrence: US)
  Receive Date: 20250811
  Receipt Date: 20250902
  Transmission Date: 20251021
  Serious: Yes (Other)
  Sender: ABBVIE
  Company Number: US-ABBVIE-6407436

PATIENT
  Age: 68 Year
  Sex: Male
  Weight: 68.945 kg

DRUGS (1)
  1. SKYRIZI [Suspect]
     Active Substance: RISANKIZUMAB-RZAA
     Indication: Psoriasis
     Dosage: UNKNOWN
     Route: 058
     Dates: start: 20221212

REACTIONS (1)
  - Precancerous condition [Recovered/Resolved]

NARRATIVE: CASE EVENT DATE: 20250603
